FAERS Safety Report 22521552 (Version 2)
Quarter: 2024Q1

REPORT INFORMATION
  Report Type: Spontaneous
  Country: AU (occurrence: AU)
  Receive Date: 20230605
  Receipt Date: 20240117
  Transmission Date: 20240410
  Serious: Yes (Other)
  Sender: FDA-Public Use
  Company Number: AU-BAUSCHBL-2023BNL004743

PATIENT
  Age: 61 Year
  Sex: Male
  Weight: 82.2 kg

DRUGS (16)
  1. DEXAMETHASONE [Suspect]
     Active Substance: DEXAMETHASONE
     Indication: Diffuse large B-cell lymphoma
     Dosage: 2ND LINE TREATMENT R-GDP
     Route: 065
     Dates: start: 20211222, end: 20220122
  2. PREDNISOLONE [Suspect]
     Active Substance: PREDNISOLONE
     Indication: Diffuse large B-cell lymphoma
     Dosage: 1ST LINE SYSTEMIC TREATMENT
     Route: 065
     Dates: start: 20210416, end: 20210820
  3. CYCLOPHOSPHAMIDE [Suspect]
     Active Substance: CYCLOPHOSPHAMIDE
     Indication: Diffuse large B-cell lymphoma
     Dosage: 1ST LINE SYSTEMIC TREATMENT
     Route: 065
     Dates: start: 20210416, end: 20210820
  4. DOXORUBICIN HYDROCHLORIDE [Suspect]
     Active Substance: DOXORUBICIN HYDROCHLORIDE
     Indication: Diffuse large B-cell lymphoma
     Dosage: 1ST LINE SYSTEMIC TREATMENT
     Route: 065
     Dates: start: 20210416, end: 20210820
  5. CARBOPLATIN [Suspect]
     Active Substance: CARBOPLATIN
     Indication: Diffuse large B-cell lymphoma
     Dosage: 3RD LINE TREATMENT R-ICE
     Route: 065
     Dates: start: 20220211, end: 20220412
  6. CISPLATIN [Suspect]
     Active Substance: CISPLATIN
     Indication: Diffuse large B-cell lymphoma
     Route: 065
     Dates: start: 20211222, end: 20220122
  7. ETOPOSIDE [Suspect]
     Active Substance: ETOPOSIDE
     Indication: Diffuse large B-cell lymphoma
     Dosage: 3RD LINE TREATMENT R-ICE
     Route: 065
     Dates: start: 20220211, end: 20220412
  8. GEMCITABINE HYDROCHLORIDE [Suspect]
     Active Substance: GEMCITABINE HYDROCHLORIDE
     Indication: Diffuse large B-cell lymphoma
     Dosage: 2ND LINE TREATMENT R-GDP
     Route: 065
     Dates: start: 20211222, end: 20220122
  9. GEMCITABINE HYDROCHLORIDE [Suspect]
     Active Substance: GEMCITABINE HYDROCHLORIDE
     Dosage: 4TH LINE TREATMENT WITH R-GEMOX
     Route: 065
     Dates: start: 20230207
  10. IFOSFAMIDE [Suspect]
     Active Substance: IFOSFAMIDE
     Indication: Diffuse large B-cell lymphoma
     Dosage: 3RD LINE TREATMENT R-ICE, THERAPY
     Route: 065
     Dates: start: 20220211, end: 20220412
  11. OXALIPLATIN [Suspect]
     Active Substance: OXALIPLATIN
     Indication: Diffuse large B-cell lymphoma
     Dosage: 4TH LINE TREATMENT WITH R-GEMOX
     Route: 065
     Dates: start: 20230207, end: 20230207
  12. RITUXIMAB [Suspect]
     Active Substance: RITUXIMAB
     Indication: Diffuse large B-cell lymphoma
     Dosage: 1ST LINE SYSTEMIC TREATMENT
     Route: 065
     Dates: start: 20210416, end: 20210820
  13. RITUXIMAB [Suspect]
     Active Substance: RITUXIMAB
     Dosage: 2ND LINE TREATMENT R-GDP
     Route: 065
     Dates: start: 20211222, end: 20220122
  14. RITUXIMAB [Suspect]
     Active Substance: RITUXIMAB
     Dosage: 3RD LINE TREATMENT R-ICE
     Route: 065
     Dates: start: 20220211, end: 20220412
  15. RITUXIMAB [Suspect]
     Active Substance: RITUXIMAB
     Dosage: 4TH LINE TREATMENT WITH R-GEMOX
     Route: 065
     Dates: start: 20230207, end: 20230207
  16. VINCRISTINE SULFATE [Suspect]
     Active Substance: VINCRISTINE SULFATE
     Indication: Diffuse large B-cell lymphoma
     Dosage: 1ST LINE SYSTEMIC TREATMENT
     Route: 065
     Dates: start: 20210416, end: 20210820

REACTIONS (1)
  - Disease progression [Unknown]

NARRATIVE: CASE EVENT DATE: 20211222
